FAERS Safety Report 8499916-9 (Version None)
Quarter: 2012Q3

REPORT INFORMATION
  Report Type: 
  Country: None (occurrence: None)
  Receive Date: 20120710
  Receipt Date: 20120704
  Transmission Date: 20120928
  Serious: Yes (Other)
  Sender: FDA-Public Use
  Company Number: PHHY2012JP058326

PATIENT
  Sex: Male

DRUGS (10)
  1. TASIGNA [Suspect]
     Indication: CHRONIC MYELOID LEUKAEMIA
     Dosage: 800 MG, DAILY
     Route: 048
     Dates: start: 20100105, end: 20100117
  2. DICLOFENAC SODIUM [Concomitant]
     Dosage: 50 G, UNK
     Dates: start: 20100913
  3. TASIGNA [Suspect]
     Dosage: 800 MG, DAILY
     Route: 048
     Dates: start: 20100705, end: 20100831
  4. LOXOPROFEN SODIUM [Concomitant]
     Route: 048
     Dates: start: 20100927
  5. TASIGNA [Suspect]
     Dosage: 400 MG, DAILY
     Route: 048
     Dates: start: 20100118, end: 20100617
  6. TASIGNA [Suspect]
     Dosage: 600 MG, DAILY
     Route: 048
     Dates: start: 20100618, end: 20100704
  7. VOLTAREN [Concomitant]
     Dosage: 50 G, UNK
     Dates: start: 20100804
  8. TIZANIDINE HYDROCHLORIDE [Concomitant]
     Route: 048
     Dates: start: 20100927
  9. SPRYCEL [Concomitant]
     Indication: CHRONIC MYELOID LEUKAEMIA
     Dosage: 100 MG, UNK
     Route: 048
     Dates: start: 20100927
  10. PL(NON-PYRINE COLD PREPARATION) [Concomitant]
     Dosage: 4 G, UNK
     Route: 048
     Dates: start: 20100927, end: 20101003

REACTIONS (2)
  - HYPERBILIRUBINAEMIA [None]
  - LIVER DISORDER [None]
